FAERS Safety Report 6793815-6 (Version None)
Quarter: 2010Q2

REPORT INFORMATION
  Report Type: 
  Country: None (occurrence: None)
  Receive Date: 20100624
  Receipt Date: 20090602
  Transmission Date: 20101027
  Serious: No
  Sender: FDA-Public Use
  Company Number: US-PFIZER INC-2008152297

PATIENT
  Sex: Female
  Weight: 20 kg

DRUGS (1)
  1. GENOTROPIN [Suspect]
     Indication: GROWTH RETARDATION
     Route: 058
     Dates: start: 20081130

REACTIONS (5)
  - DRY SKIN [None]
  - ERYTHEMA [None]
  - PRURITUS [None]
  - RASH [None]
  - RASH PAPULAR [None]
